FAERS Safety Report 5737101-1 (Version None)
Quarter: 2008Q2

REPORT INFORMATION
  Report Type: 
  Country: None (occurrence: None)
  Receive Date: 20080514
  Receipt Date: 20080505
  Transmission Date: 20081010
  Serious: Yes (Other)
  Sender: FDA-Public Use
  Company Number: US-BAYER-200821267NA

PATIENT
  Age: 27 Year
  Sex: Female
  Weight: 58 kg

DRUGS (7)
  1. MIRENA [Suspect]
     Indication: CONTRACEPTION
     Route: 015
     Dates: start: 20061001
  2. LORTAB [Concomitant]
     Indication: ABDOMINAL PAIN
  3. PRILOSEC [Concomitant]
  4. ZANTAC [Concomitant]
     Indication: GASTRITIS
  5. CARAFATE [Concomitant]
  6. KLONOPIN [Concomitant]
     Indication: ANXIETY
  7. VITAMINS [Concomitant]

REACTIONS (18)
  - ABDOMINAL PAIN [None]
  - ABDOMINAL PAIN LOWER [None]
  - ABDOMINAL PAIN UPPER [None]
  - CERVIX DISORDER [None]
  - DYSPAREUNIA [None]
  - DYSPEPSIA [None]
  - FEELING ABNORMAL [None]
  - GASTRIC ULCER HELICOBACTER [None]
  - GASTRITIS [None]
  - HEPATIC CYST [None]
  - IUCD COMPLICATION [None]
  - METRORRHAGIA [None]
  - PAIN [None]
  - POLYP [None]
  - POST PROCEDURAL HAEMORRHAGE [None]
  - PROCEDURAL PAIN [None]
  - UTERINE SPASM [None]
  - VAGINAL CANDIDIASIS [None]
